FAERS Safety Report 9682293 (Version 2)
Quarter: 2013Q4

REPORT INFORMATION
  Report Type: Spontaneous
  Country: SE (occurrence: SE)
  Receive Date: 20131112
  Receipt Date: 20131119
  Transmission Date: 20140711
  Serious: Yes (Hospitalization)
  Sender: FDA-Public Use
  Company Number: SE-JNJFOC-20131018605

PATIENT
  Sex: Female

DRUGS (6)
  1. IPREN [Suspect]
     Route: 048
  2. IPREN [Suspect]
     Indication: PRODUCT USED FOR UNKNOWN INDICATION
     Route: 048
     Dates: start: 20130707, end: 20130717
  3. DIKLOFENAK [Suspect]
     Indication: PAIN IN EXTREMITY
     Route: 048
     Dates: start: 20130718
  4. DIKLOFENAK [Suspect]
     Indication: PAIN IN EXTREMITY
     Route: 061
     Dates: start: 20130718
  5. ESIDREX [Concomitant]
     Indication: PRODUCT USED FOR UNKNOWN INDICATION
     Route: 065
  6. AMILORID [Concomitant]
     Indication: PRODUCT USED FOR UNKNOWN INDICATION
     Route: 065

REACTIONS (3)
  - Fatigue [Unknown]
  - Inadequate diet [Unknown]
  - Nausea [Unknown]
